FAERS Safety Report 8209799-X (Version None)
Quarter: 2012Q1

REPORT INFORMATION
  Report Type: 
  Country: None (occurrence: None)
  Receive Date: 20120314
  Receipt Date: 20120308
  Transmission Date: 20120608
  Serious: Yes (Hospitalization)
  Sender: FDA-Public Use
  Company Number: JP-PFIZER INC-2012062524

PATIENT
  Age: 20 Year
  Sex: Female

DRUGS (1)
  1. CLINDAMYCIN HCL [Suspect]
     Dosage: 600 MG/DAY
     Route: 041
     Dates: start: 20120307, end: 20120307

REACTIONS (2)
  - NAUSEA [None]
  - DYSPNOEA [None]
